FAERS Safety Report 18498253 (Version 2)
Quarter: 2020Q4

REPORT INFORMATION
  Report Type: Spontaneous
  Country: JP (occurrence: JP)
  Receive Date: 20201113
  Receipt Date: 20201204
  Transmission Date: 20210114
  Serious: Yes (Hospitalization)
  Sender: FDA-Public Use
  Company Number: JP-ELI_LILLY_AND_COMPANY-JP202010007772

PATIENT
  Age: 55 Year
  Sex: Female

DRUGS (5)
  1. TAKEPRON [Concomitant]
     Active Substance: LANSOPRAZOLE
     Indication: RHEUMATOID ARTHRITIS
     Dosage: 15 MG, DAILY
     Route: 048
  2. RHEUMATREX [Concomitant]
     Active Substance: METHOTREXATE SODIUM
     Indication: RHEUMATOID ARTHRITIS
     Dosage: 8 MG, DAILY
  3. FOLIAMIN [Concomitant]
     Active Substance: FOLIC ACID
     Indication: RHEUMATOID ARTHRITIS
     Dosage: 5 MG, DAILY
     Route: 048
  4. PREDONINE [Concomitant]
     Active Substance: PREDNISOLONE
     Indication: RHEUMATOID ARTHRITIS
     Dosage: 5 MG, DAILY
     Route: 048
  5. OLUMIANT [Suspect]
     Active Substance: BARICITINIB
     Indication: RHEUMATOID ARTHRITIS
     Dosage: 2 MG, DAILY
     Route: 048
     Dates: start: 20200129, end: 20200915

REACTIONS (5)
  - Humerus fracture [Recovering/Resolving]
  - Oxygen saturation decreased [Recovered/Resolved]
  - Malaise [Recovered/Resolved]
  - Fall [Recovering/Resolving]
  - Dyspnoea exertional [Recovered/Resolved]

NARRATIVE: CASE EVENT DATE: 20200915
